FAERS Safety Report 25542418 (Version 2)
Quarter: 2025Q3

REPORT INFORMATION
  Report Type: Spontaneous
  Country: EU (occurrence: EU)
  Receive Date: 20250711
  Receipt Date: 20250810
  Transmission Date: 20251021
  Serious: Yes (Hospitalization, Other)
  Sender: ALEXION PHARMACEUTICALS
  Company Number: EU-ASTRAZENECA-202507GLO002393CZ

PATIENT
  Age: 56 Year
  Sex: Female

DRUGS (1)
  1. ROSUVASTATIN [Suspect]
     Active Substance: ROSUVASTATIN
     Indication: Myocardial infarction
     Dosage: 40 MILLIGRAM, QD
     Route: 065

REACTIONS (2)
  - Acute kidney injury [Unknown]
  - Rhabdomyolysis [Unknown]
